FAERS Safety Report 16366484 (Version 1)
Quarter: 2019Q2

REPORT INFORMATION
  Report Type: Spontaneous
  Country: DE (occurrence: DE)
  Receive Date: 20190529
  Receipt Date: 20190529
  Transmission Date: 20190711
  Serious: Yes (Hospitalization)
  Sender: FDA-Public Use
  Company Number: DE-TEVA-2019-DE-1055649

PATIENT
  Age: 62 Year
  Sex: Female

DRUGS (3)
  1. QUILONUM [Interacting]
     Active Substance: LITHIUM
     Indication: SCHIZOAFFECTIVE DISORDER
     Dosage: 1.125 GRAM DAILY;
     Route: 065
     Dates: start: 1992
  2. RAMIPRIL. [Interacting]
     Active Substance: RAMIPRIL
     Route: 065
     Dates: start: 2008
  3. RAMIPRIL. [Suspect]
     Active Substance: RAMIPRIL
     Indication: HYPERTENSION
     Route: 065
     Dates: start: 2006

REACTIONS (2)
  - Drug interaction [Recovered/Resolved]
  - Toxicity to various agents [Recovered/Resolved]
